FAERS Safety Report 24322930 (Version 1)
Quarter: 2024Q3

REPORT INFORMATION
  Report Type: Spontaneous
  Country: US (occurrence: None)
  Receive Date: 20240913
  Receipt Date: 20240913
  Transmission Date: 20241017
  Serious: No
  Sender: Public
  Company Number: None

PATIENT
  Age: 2 Year
  Sex: Male

DRUGS (3)
  1. EPIDIOLEX [Suspect]
     Active Substance: CANNABIDIOL
     Indication: Infantile spasms
     Dosage: FREQUENCY : DAILY;?
     Route: 048
     Dates: start: 20240530, end: 20240829
  2. CLOBAZAM [Suspect]
     Active Substance: CLOBAZAM
  3. CANNABIDIOL\HERBALS [Suspect]
     Active Substance: CANNABIDIOL\HERBALS

REACTIONS (5)
  - Seizure [None]
  - Salivary hypersecretion [None]
  - Choking [None]
  - Drug ineffective [None]
  - Inappropriate schedule of product discontinuation [None]

NARRATIVE: CASE EVENT DATE: 20240829
